FAERS Safety Report 11909333 (Version 1)
Quarter: 2016Q1

REPORT INFORMATION
  Report Type: Spontaneous
  Country: US (occurrence: US)
  Receive Date: 20160112
  Receipt Date: 20160112
  Transmission Date: 20160526
  Serious: No
  Sender: FDA-Public Use
  Company Number: US-TEVA-608905USA

PATIENT
  Age: 45 Year
  Sex: Female

DRUGS (1)
  1. ZECUITY [Suspect]
     Active Substance: SUMATRIPTAN SUCCINATE
     Indication: MIGRAINE
     Route: 062
     Dates: start: 20151107

REACTIONS (7)
  - Application site discolouration [Not Recovered/Not Resolved]
  - Drug effect incomplete [Unknown]
  - Application site erythema [Unknown]
  - Feeling abnormal [Unknown]
  - Product physical issue [Unknown]
  - Application site erythema [Recovering/Resolving]
  - Application site pruritus [Recovered/Resolved]

NARRATIVE: CASE EVENT DATE: 201511
